FAERS Safety Report 8713551 (Version 3)
Quarter: 2012Q4

REPORT INFORMATION
  Report Type: 
  Country: US (occurrence: US)
  Receive Date: 20120808
  Receipt Date: 20121112
  Transmission Date: 20130627
  Serious: No
  Sender: FDA-Public Use
  Company Number: US-ASTRAZENECA-2012SE53527

PATIENT
  Age: 67 Year
  Sex: Female
  Weight: 72.6 kg

DRUGS (8)
  1. NEXIUM [Suspect]
     Indication: GASTROOESOPHAGEAL REFLUX DISEASE
     Route: 048
     Dates: start: 2002
  2. NEXIUM [Suspect]
     Indication: ULCER
     Route: 048
     Dates: start: 2002
  3. NEXIUM [Suspect]
     Indication: GASTROOESOPHAGEAL REFLUX DISEASE
     Route: 048
     Dates: start: 2007
  4. NEXIUM [Suspect]
     Indication: ULCER
     Route: 048
     Dates: start: 2007
  5. BYSTOLIC [Concomitant]
     Indication: CARDIAC VALVE DISEASE
  6. BYSTOLIC [Concomitant]
     Indication: HEART RATE IRREGULAR
  7. PREMARIN [Concomitant]
     Indication: MENOPAUSE
  8. PREMARIN [Concomitant]
     Indication: HORMONE REPLACEMENT THERAPY

REACTIONS (4)
  - Gastric disorder [Recovered/Resolved]
  - Adverse event [Unknown]
  - Malaise [Recovered/Resolved]
  - Intentional drug misuse [Unknown]
